FAERS Safety Report 23679518 (Version 1)
Quarter: 2024Q1

REPORT INFORMATION
  Report Type: Spontaneous
  Country: US (occurrence: US)
  Receive Date: 20240327
  Receipt Date: 20240327
  Transmission Date: 20240409
  Serious: No
  Sender: FDA-Public Use
  Company Number: US-TEVA-VS-3163236

PATIENT
  Sex: Female

DRUGS (6)
  1. CLONIDINE HYDROCHLORIDE [Suspect]
     Active Substance: CLONIDINE HYDROCHLORIDE
     Indication: Product used for unknown indication
     Route: 065
  2. CLONIDINE HYDROCHLORIDE [Suspect]
     Active Substance: CLONIDINE HYDROCHLORIDE
     Indication: Product used for unknown indication
     Route: 065
  3. CLONIDINE HYDROCHLORIDE [Suspect]
     Active Substance: CLONIDINE HYDROCHLORIDE
     Indication: Product used for unknown indication
     Route: 065
  4. AMLODIPINE [Concomitant]
     Active Substance: AMLODIPINE BESYLATE
     Indication: Product used for unknown indication
     Dosage: AMLODIPINE 5 MG ONCE DAILY MANUFACTURED BY CIPLA USA, DESCRIBED AS A WHITE TABLET WITH 127 SIDE O...
     Route: 065
  5. LOSARTAN [Concomitant]
     Active Substance: LOSARTAN
     Indication: Product used for unknown indication
     Route: 065
  6. SOTALOL [Concomitant]
     Active Substance: SOTALOL
     Indication: Product used for unknown indication
     Route: 065

REACTIONS (9)
  - Rash pruritic [Not Recovered/Not Resolved]
  - Blister [Not Recovered/Not Resolved]
  - Skin lesion [Not Recovered/Not Resolved]
  - Therapy change [Unknown]
  - Impaired driving ability [Unknown]
  - Irritability [Unknown]
  - Erythema [Not Recovered/Not Resolved]
  - Blood pressure abnormal [Unknown]
  - Dizziness [Unknown]
